FAERS Safety Report 22158632 (Version 1)
Quarter: 2023Q1

REPORT INFORMATION
  Report Type: Spontaneous
  Country: None (occurrence: PL)
  Receive Date: 20230331
  Receipt Date: 20230331
  Transmission Date: 20230417
  Serious: Yes (Other)
  Sender: FDA-Public Use
  Company Number: PL-Therakind Limited-2139735

PATIENT
  Sex: Female

DRUGS (2)
  1. METHOTREXATE [Suspect]
     Active Substance: METHOTREXATE
     Indication: Chronic graft versus host disease
     Dates: start: 20211010
  2. PREDNISONE [Suspect]
     Active Substance: PREDNISONE

REACTIONS (5)
  - Scleroderma [Unknown]
  - Mucosal disorder [Unknown]
  - Chronic graft versus host disease [Unknown]
  - Dry eye [Unknown]
  - Product use in unapproved indication [Unknown]
